FAERS Safety Report 18974449 (Version 2)
Quarter: 2021Q1

REPORT INFORMATION
  Report Type: Spontaneous
  Country: BE (occurrence: BE)
  Receive Date: 20210305
  Receipt Date: 20210319
  Transmission Date: 20210420
  Serious: Yes (Hospitalization)
  Sender: FDA-Public Use
  Company Number: BE-ORGANON-O2103BEL000132

PATIENT
  Age: 62 Year
  Sex: Female
  Weight: 31.5 kg

DRUGS (14)
  1. MONTELUKAST SODIUM. [Suspect]
     Active Substance: MONTELUKAST SODIUM
     Indication: ASTHMA
     Dosage: 1 DOSAGE FORM, QD (IN THE MORNING TAKEN SINCE AT LEAST 2017. STOPPED ON 06?JAN?2021, 3 DAYS AFTER AD
     Route: 048
     Dates: start: 2017, end: 20210106
  2. LIVIAL [Concomitant]
     Active Substance: TIBOLONE
     Dosage: 1 DOSAGE FORM, QD (IN THE MORNING)
  3. BISOPROLOL [Concomitant]
     Active Substance: BISOPROLOL
     Dosage: 2 DOSAGE FORM, QD
  4. MOVICOL PLAIN [Concomitant]
     Active Substance: POLYETHYLENE GLYCOL 3350\POTASSIUM CHLORIDE\SODIUM BICARBONATE\SODIUM CHLORIDE
     Indication: CONSTIPATION
     Dosage: UNK (1?2 SACHET IF CONSTIPATION)
  5. OMEPRAZOLE. [Concomitant]
     Active Substance: OMEPRAZOLE
     Dosage: 1 DOSAGE FORM, QD (IN THE EVENING)
  6. PERINDOPRIL [Concomitant]
     Active Substance: PERINDOPRIL
     Dosage: 1 DOSAGE FORM, QD (IN THE MORNING)
  7. D?CURE [Concomitant]
     Active Substance: CHOLECALCIFEROL
     Dosage: 1 DOSAGE FORM, BIW
  8. TRIMBOW [Concomitant]
     Active Substance: BECLOMETHASONE DIPROPIONATE\FORMOTEROL FUMARATE\GLYCOPYRROLATE
     Dosage: 2 PUFFS, IN THE MORNING AND IN THE EVENING (DOSE AND FREQUENCY UNKNOWN)
  9. SIMVASTATIN. [Concomitant]
     Active Substance: SIMVASTATIN
     Dosage: 1 DOSAGE FORM, QD (IN THE EVENING)
  10. REMERGON [Suspect]
     Active Substance: MIRTAZAPINE
     Indication: APPETITE DISORDER
     Dosage: 1 DOSAGE FORM, QD (IN THE EVENING)
     Route: 048
     Dates: start: 20201224, end: 20210106
  11. SEDISTRESS SLEEP [Concomitant]
     Dosage: 1 DOSAGE FORM, QD (IN THE EVENING)
  12. CETIRIZINE HYDROCHLORIDE. [Concomitant]
     Active Substance: CETIRIZINE HYDROCHLORIDE
     Dosage: 1 DOSAGE FORM, QD (IN THE EVENING)
  13. ZITROMAX [Concomitant]
     Active Substance: AZITHROMYCIN
     Dosage: 3 DOSAGE FORM, QW
  14. DUOVENT [Concomitant]
     Active Substance: FENOTEROL HYDROBROMIDE
     Dosage: IF NECESSARY

REACTIONS (4)
  - Delirium [Recovering/Resolving]
  - Bradyphrenia [Recovering/Resolving]
  - Confusional state [Recovering/Resolving]
  - Respiratory acidosis [Recovering/Resolving]

NARRATIVE: CASE EVENT DATE: 20210101
